FAERS Safety Report 6231204-3 (Version None)
Quarter: 2009Q2

REPORT INFORMATION
  Report Type: 
  Country: None (occurrence: None)
  Receive Date: 20090616
  Receipt Date: 20090605
  Transmission Date: 20091009
  Serious: Yes (Hospitalization, Other)
  Sender: FDA-Public Use
  Company Number: AU-AVENTIS-200915602GDDC

PATIENT
  Age: 68 Year
  Sex: Female

DRUGS (8)
  1. METFORMIN HCL [Suspect]
     Indication: DIABETES MELLITUS
     Route: 048
     Dates: end: 20080425
  2. GLIBENCLAMIDE [Suspect]
     Indication: DIABETES MELLITUS
     Route: 048
     Dates: end: 20080425
  3. GLUCOSAMINE [Concomitant]
  4. LANTUS [Concomitant]
     Route: 058
  5. SIMVASTATIN [Concomitant]
     Route: 048
  6. LERCANIDIPINE [Concomitant]
     Route: 048
  7. SERETIDE [Concomitant]
     Dosage: DOSE: 250/25 MCG
  8. TELMISARTAN [Concomitant]
     Dosage: DOSE QUANTITY: 1
     Route: 048

REACTIONS (5)
  - ANURIA [None]
  - LACTIC ACIDOSIS [None]
  - NAUSEA [None]
  - RENAL FAILURE ACUTE [None]
  - VOMITING [None]
